FAERS Safety Report 5877989-7 (Version None)
Quarter: 2008Q3

REPORT INFORMATION
  Report Type: 
  Country: None (occurrence: None)
  Receive Date: 20080911
  Receipt Date: 20080904
  Transmission Date: 20090109
  Serious: Yes (Disabling)
  Sender: FDA-Public Use
  Company Number: SE-ASTRAZENECA-2008SE04193

PATIENT
  Age: 51 Year
  Sex: Female

DRUGS (1)
  1. MARCAINE [Suspect]

REACTIONS (1)
  - HYPOAESTHESIA [None]
